FAERS Safety Report 14599097 (Version 1)
Quarter: 2018Q1

REPORT INFORMATION
  Report Type: Spontaneous
  Country: JP (occurrence: JP)
  Receive Date: 20180305
  Receipt Date: 20180305
  Transmission Date: 20180509
  Serious: Yes (Hospitalization, Other)
  Sender: FDA-Public Use
  Company Number: JP-IMPAX LABORATORIES, INC-2018-IPXL-00615

PATIENT
  Age: 21 Year
  Sex: Female

DRUGS (2)
  1. HYDROCORTISONE. [Suspect]
     Active Substance: HYDROCORTISONE
     Indication: PRODUCT USED FOR UNKNOWN INDICATION
     Dosage: UNK
     Route: 065
  2. HYDROCORTISONE. [Suspect]
     Active Substance: HYDROCORTISONE
     Dosage: STRESS DOSE (UNK)
     Route: 065

REACTIONS (7)
  - Hypoxic-ischaemic encephalopathy [Recovered/Resolved]
  - Systemic inflammatory response syndrome [Recovered/Resolved]
  - Pyrexia [Unknown]
  - Wrong dose [Unknown]
  - Adrenocortical insufficiency acute [Recovered/Resolved]
  - Multiple organ dysfunction syndrome [Recovered/Resolved]
  - Cerebellar ataxia [Not Recovered/Not Resolved]
